FAERS Safety Report 5100211-6 (Version None)
Quarter: 2006Q3

REPORT INFORMATION
  Report Type: 
  Country: None (occurrence: None)
  Receive Date: 20060731
  Receipt Date: 20060515
  Transmission Date: 20061208
  Serious: No
  Sender: FDA-Public Use
  Company Number: 2006PV013816

PATIENT
  Age: 47 Year
  Sex: Female
  Weight: 122.4712 kg

DRUGS (1)
  1. BYETTA [Suspect]
     Indication: DIABETES MELLITUS NON-INSULIN-DEPENDENT
     Dosage: 10 MCG; BID '; SC
     Route: 058
     Dates: start: 20050701

REACTIONS (3)
  - BLOOD GLUCOSE FLUCTUATION [None]
  - NAUSEA [None]
  - WEIGHT DECREASED [None]
